FAERS Safety Report 5062630-6 (Version None)
Quarter: 2006Q3

REPORT INFORMATION
  Report Type: 
  Country: None (occurrence: None)
  Receive Date: 20060724
  Receipt Date: 20051205
  Transmission Date: 20061208
  Serious: Yes (Hospitalization, Other)
  Sender: FDA-Public Use
  Company Number: DE-2005-003508

PATIENT
  Age: 61 Year
  Sex: Male

DRUGS (4)
  1. INTERFERON BETA-1B VS. PLACEBO (BETAFERON (SH Y 579E)) INJECTION, 250U [Suspect]
     Indication: CARDIOMYOPATHY
     Dosage: 4 MIU, EVERY 2D, SUBCUTANEOUS
     Route: 058
     Dates: start: 20040615, end: 20041206
  2. VOLTAREN [Concomitant]
  3. ACE INHIBITOR NOS [Concomitant]
  4. EBRANTIL (URAPIDIL) [Concomitant]

REACTIONS (1)
  - ATRIOVENTRICULAR BLOCK THIRD DEGREE [None]
